FAERS Safety Report 9515635 (Version 1)
Quarter: 2013Q3

REPORT INFORMATION
  Report Type: Spontaneous
  Country: US (occurrence: US)
  Receive Date: 20130911
  Receipt Date: 20130911
  Transmission Date: 20140515
  Serious: No
  Sender: FDA-Public Use
  Company Number: US-009507513-1308USA013540

PATIENT
  Sex: Female
  Weight: 63.49 kg

DRUGS (1)
  1. NUVARING [Suspect]
     Dosage: THREE WEEKS IN, ONE OUT
     Route: 067
     Dates: start: 201307

REACTIONS (2)
  - Device expulsion [Unknown]
  - No adverse event [Unknown]
